FAERS Safety Report 9579992 (Version 1)
Quarter: 2013Q4

REPORT INFORMATION
  Report Type: Spontaneous
  Country: US (occurrence: US)
  Receive Date: 20131002
  Receipt Date: 20131002
  Transmission Date: 20140711
  Serious: Yes (Other)
  Sender: FDA-Public Use
  Company Number: US-JNJFOC-20130913769

PATIENT
  Sex: 0

DRUGS (2)
  1. TYLENOL [Suspect]
     Route: 048
  2. TYLENOL [Suspect]
     Indication: PAIN
     Route: 048

REACTIONS (5)
  - Malaise [Unknown]
  - Hepatic failure [Unknown]
  - Vomiting [Unknown]
  - Jaundice [Unknown]
  - Weight decreased [Unknown]
